FAERS Safety Report 7932524-4 (Version None)
Quarter: 2011Q4

REPORT INFORMATION
  Report Type: 
  Country: None (occurrence: None)
  Receive Date: 20111122
  Receipt Date: 20111116
  Transmission Date: 20120403
  Serious: No
  Sender: FDA-Public Use
  Company Number: US-BIOGENIDEC-2011BI043794

PATIENT
  Age: 42 Year
  Sex: Female

DRUGS (2)
  1. CLARITIN [Concomitant]
     Indication: PREMEDICATION
  2. TYSABRI [Suspect]
     Indication: MULTIPLE SCLEROSIS
     Route: 042
     Dates: start: 20110926

REACTIONS (3)
  - DIARRHOEA [None]
  - PRURITUS [None]
  - VULVOVAGINAL MYCOTIC INFECTION [None]
